FAERS Safety Report 6302786-8 (Version None)
Quarter: 2009Q3

REPORT INFORMATION
  Report Type: 
  Country: None (occurrence: None)
  Receive Date: 20090810
  Receipt Date: 20090709
  Transmission Date: 20100115
  Serious: No
  Sender: FDA-Public Use
  Company Number: US-BAYER-200912340BCC

PATIENT
  Age: 61 Year
  Sex: Male
  Weight: 72 kg

DRUGS (5)
  1. ALEVE [Suspect]
     Indication: ARTHRITIS
     Dosage: UNIT DOSE: 220 MG
     Route: 048
     Dates: start: 20090401
  2. ALEVE [Suspect]
     Indication: ARTHRITIS
     Dosage: 3 TIMES A WEEK
     Route: 048
  3. ANTI-INFLAMATORY DRUGS [Concomitant]
     Route: 065
  4. SINUS MEDICATION [Concomitant]
  5. ANTIHISTAMINES [Concomitant]

REACTIONS (2)
  - NAUSEA [None]
  - SKIN EXFOLIATION [None]
